FAERS Safety Report 8035877-4 (Version None)
Quarter: 2012Q1

REPORT INFORMATION
  Report Type: 
  Country: None (occurrence: None)
  Receive Date: 20120111
  Receipt Date: 20120111
  Transmission Date: 20120608
  Serious: No
  Sender: FDA-Public Use
  Company Number: None

PATIENT
  Sex: Male
  Weight: 73.481 kg

DRUGS (1)
  1. CIPROFLOXACIN [Suspect]
     Indication: URETHRITIS
     Dosage: 500 MG
     Route: 048
     Dates: start: 20120107, end: 20120109

REACTIONS (3)
  - TENDON PAIN [None]
  - BURNING SENSATION [None]
  - INITIAL INSOMNIA [None]
